FAERS Safety Report 24698200 (Version 1)
Quarter: 2024Q4

REPORT INFORMATION
  Report Type: Spontaneous
  Country: CN (occurrence: CN)
  Receive Date: 20241204
  Receipt Date: 20241204
  Transmission Date: 20250114
  Serious: Yes (Hospitalization, Other)
  Sender: DAIICHI
  Company Number: CN-DSJP-DS-2024-110027-CN

PATIENT
  Age: 88 Year
  Sex: Female

DRUGS (1)
  1. EDOXABAN [Suspect]
     Active Substance: EDOXABAN
     Indication: Anticoagulant therapy
     Dosage: 60 MG, QD
     Route: 048
     Dates: start: 20220530, end: 20240123

REACTIONS (6)
  - Upper gastrointestinal haemorrhage [Recovering/Resolving]
  - Cholecystitis [Unknown]
  - Cholelithiasis [Unknown]
  - Diverticulum intestinal [Unknown]
  - Fibrin D dimer increased [Unknown]
  - White blood cell count increased [Unknown]

NARRATIVE: CASE EVENT DATE: 20240123
